FAERS Safety Report 4400888-4 (Version None)
Quarter: 2004Q3

REPORT INFORMATION
  Report Type: 
  Country: None (occurrence: None)
  Receive Date: 20040907
  Receipt Date: 20030722
  Transmission Date: 20050211
  Serious: No
  Sender: FDA-Public Use
  Company Number: US-BRISTOL-MYERS SQUIBB COMPANY-12332862

PATIENT
  Age: 71 Year
  Sex: Female
  Weight: 100 kg

DRUGS (5)
  1. COUMADIN [Suspect]
     Indication: MALNUTRITION
     Dosage: DOSAGE: 5MG DAILY ON FIVE DAYS AND 7.5MG DAILY ON 2 DAYS
     Route: 048
  2. HYDROCHLOROTHIAZIDE [Concomitant]
  3. ZESTRIL [Concomitant]
  4. RANITIDINE [Concomitant]
  5. NORVASC [Concomitant]

REACTIONS (1)
  - INTERNATIONAL NORMALISED RATIO DECREASED [None]
